FAERS Safety Report 7700480-X (Version None)
Quarter: 2011Q3

REPORT INFORMATION
  Report Type: 
  Country: None (occurrence: None)
  Receive Date: 20110822
  Receipt Date: 20110809
  Transmission Date: 20111222
  Serious: Yes (Other)
  Sender: FDA-Public Use
  Company Number: US-JNJFOC-20110807864

PATIENT
  Sex: Male
  Weight: 77 kg

DRUGS (3)
  1. DIABETES MEDICATION [Concomitant]
     Indication: DIABETES MELLITUS
  2. IBUPROFEN [Suspect]
     Indication: PRODUCT USED FOR UNKNOWN INDICATION
     Route: 065
  3. ANTI-HYPERTENSIVES [Concomitant]
     Indication: HYPERTENSION

REACTIONS (1)
  - CONVULSION [None]
